FAERS Safety Report 8437335-1 (Version None)
Quarter: 2012Q2

REPORT INFORMATION
  Report Type: 
  Country: None (occurrence: None)
  Receive Date: 20120614
  Receipt Date: 20120308
  Transmission Date: 20120825
  Serious: No
  Sender: FDA-Public Use
  Company Number: US-AMGEN-USASP2012015383

PATIENT
  Sex: Male

DRUGS (1)
  1. XGEVA [Suspect]
     Indication: METASTASES TO BONE
     Dates: start: 20120101

REACTIONS (6)
  - PAIN IN JAW [None]
  - ABDOMINAL DISCOMFORT [None]
  - RENAL DISORDER [None]
  - BONE PAIN [None]
  - HYPERHIDROSIS [None]
  - DYSPNOEA [None]
